FAERS Safety Report 8385370 (Version 2)
Quarter: 2015Q1

REPORT INFORMATION
  Report Type: Report from Study
  Country: US (occurrence: US)
  Receive Date: 20120202
  Receipt Date: 20150226
  Transmission Date: 20150721
  Serious: Yes (Death, Other)
  Sender: FDA-Public Use
  Company Number: US-ROCHE-1035727

PATIENT
  Sex: Male

DRUGS (18)
  1. DURAGESIC [Concomitant]
     Active Substance: FENTANYL
     Route: 065
  2. AVASTIN [Suspect]
     Active Substance: BEVACIZUMAB
     Indication: SOFT TISSUE SARCOMA
  3. BENADRYL [Concomitant]
     Active Substance: DIPHENHYDRAMINE HYDROCHLORIDE
     Route: 065
  4. MS CONTIN [Concomitant]
     Active Substance: MORPHINE SULFATE
  5. TAGAMET [Concomitant]
     Active Substance: CIMETIDINE
     Route: 042
  6. AVASTIN [Suspect]
     Active Substance: BEVACIZUMAB
     Indication: NASOPHARYNGEAL CANCER
     Route: 042
     Dates: start: 20070424
  7. PREDNISONE. [Concomitant]
     Active Substance: PREDNISONE
     Route: 065
  8. LACTULOSE. [Concomitant]
     Active Substance: LACTULOSE
     Route: 065
  9. CARBOPLATIN. [Concomitant]
     Active Substance: CARBOPLATIN
     Route: 042
  10. ZOFRAN [Concomitant]
     Active Substance: ONDANSETRON HYDROCHLORIDE
  11. KYTRIL [Concomitant]
     Active Substance: GRANISETRON HYDROCHLORIDE
     Route: 065
  12. TAXOTERE [Concomitant]
     Active Substance: DOCETAXEL
     Route: 042
  13. MORPHINE SULFATE IR [Concomitant]
  14. DECADRON [Concomitant]
     Active Substance: DEXAMETHASONE
     Route: 065
  15. MIRALAX [Concomitant]
     Active Substance: POLYETHYLENE GLYCOL 3350
  16. DURAGESIC [Concomitant]
     Active Substance: FENTANYL
     Route: 065
  17. PEPCID [Concomitant]
     Active Substance: FAMOTIDINE
     Route: 065
  18. COMPAZINE [Concomitant]
     Active Substance: PROCHLORPERAZINE MALEATE

REACTIONS (12)
  - Eyelid oedema [Unknown]
  - Malaise [Unknown]
  - Oral disorder [Unknown]
  - Eye swelling [Unknown]
  - Cytopenia [Unknown]
  - Visual impairment [Unknown]
  - Nausea [Unknown]
  - Off label use [Unknown]
  - Head discomfort [Unknown]
  - Vomiting [Unknown]
  - Death [Fatal]
  - Pain [Unknown]
